FAERS Safety Report 8567627-7 (Version None)
Quarter: 2012Q3

REPORT INFORMATION
  Report Type: 
  Country: None (occurrence: None)
  Receive Date: 20120803
  Receipt Date: 20120725
  Transmission Date: 20120928
  Serious: Yes (Other)
  Sender: FDA-Public Use
  Company Number: CA-ROCHE-1057882

PATIENT
  Sex: Female

DRUGS (5)
  1. NASONEX [Concomitant]
  2. XOLAIR [Suspect]
     Indication: ASTHMA
     Route: 058
     Dates: start: 20120113
  3. FLUTICASONE PROPIONATE [Concomitant]
  4. VENTOLIN [Concomitant]
  5. XOLAIR [Suspect]
     Route: 058
     Dates: start: 20120319

REACTIONS (10)
  - INJECTION SITE PAIN [None]
  - NASOPHARYNGITIS [None]
  - ASTHMA [None]
  - ABDOMINAL PAIN LOWER [None]
  - DRUG INEFFECTIVE [None]
  - UPPER-AIRWAY COUGH SYNDROME [None]
  - PROCTALGIA [None]
  - EAR PAIN [None]
  - HYPERSENSITIVITY [None]
  - RECTAL HAEMORRHAGE [None]
